FAERS Safety Report 6112309-4 (Version None)
Quarter: 2009Q1

REPORT INFORMATION
  Report Type: 
  Country: None (occurrence: None)
  Receive Date: 20090311
  Receipt Date: 20090311
  Transmission Date: 20090719
  Serious: Yes (Other)
  Sender: FDA-Public Use
  Company Number: None

PATIENT
  Sex: Female
  Weight: 88.4514 kg

DRUGS (1)
  1. CYMBALTA [Suspect]
     Indication: NEURALGIA
     Dosage: DAILY PO
     Route: 048
     Dates: start: 20081001, end: 20090201

REACTIONS (5)
  - BLOOD GLUCOSE INCREASED [None]
  - DYSKINESIA [None]
  - INSOMNIA [None]
  - MUSCLE SPASMS [None]
  - TREMOR [None]
